FAERS Safety Report 11916844 (Version 6)
Quarter: 2016Q4

REPORT INFORMATION
  Report Type: Spontaneous
  Country: US (occurrence: US)
  Receive Date: 20160114
  Receipt Date: 20161007
  Transmission Date: 20170206
  Serious: No
  Sender: FDA-Public Use
  Company Number: US-PFIZER INC-2015459816

PATIENT
  Age: 67 Year
  Sex: Male
  Weight: 104.3 kg

DRUGS (11)
  1. INLYTA [Suspect]
     Active Substance: AXITINIB
     Dosage: THREE 1 MG, TABLET, TWICE A DAY MORNING AND NIGHT
     Route: 048
     Dates: start: 201601
  2. INLYTA [Suspect]
     Active Substance: AXITINIB
     Indication: RENAL CANCER METASTATIC
     Dosage: 5 MG, 2X/DAY (5MG TABLE, 1 TABLET TWICE A DAY)
     Route: 048
     Dates: start: 201508
  3. INLYTA [Suspect]
     Active Substance: AXITINIB
     Dosage: 3 MG, 2X/DAY
     Dates: start: 201601
  4. DILTIAZEM CD [Concomitant]
     Active Substance: DILTIAZEM
     Dosage: 180 MG, DAILY
  5. ATENOLOL. [Concomitant]
     Active Substance: ATENOLOL
     Dosage: 50 MG, DAILY
  6. INLYTA [Suspect]
     Active Substance: AXITINIB
     Dosage: 2 MG, 2X/DAY
     Dates: start: 201602
  7. ATORVASTATIN [Concomitant]
     Active Substance: ATORVASTATIN
     Dosage: 20 MG, DAILY
  8. CITRACAL + VITAMIN D [Concomitant]
     Dosage: 500 IU, DAILY
  9. LEVOTHYROXINE. [Concomitant]
     Active Substance: LEVOTHYROXINE
     Dosage: 0.175 MG, DAILY
  10. INLYTA [Suspect]
     Active Substance: AXITINIB
     Dosage: 4 MG, 2X/DAY(DECREASED TO 1MG TABLETS AND TOOK 4 TABLETS TWICE A DAY)
  11. XGEVA [Concomitant]
     Active Substance: DENOSUMAB
     Dosage: UNK, MONTHLY (ONCE A MONTH)

REACTIONS (5)
  - Blister [Recovered/Resolved]
  - Pain [Recovered/Resolved]
  - Palmar-plantar erythrodysaesthesia syndrome [Recovered/Resolved]
  - Diarrhoea [Unknown]
  - Aphonia [Not Recovered/Not Resolved]

NARRATIVE: CASE EVENT DATE: 201508
